FAERS Safety Report 6875574-1 (Version None)
Quarter: 2010Q3

REPORT INFORMATION
  Report Type: 
  Country: None (occurrence: None)
  Receive Date: 20100727
  Receipt Date: 20100716
  Transmission Date: 20110219
  Serious: Yes (Hospitalization)
  Sender: FDA-Public Use
  Company Number: FR-JNJFOC-20100705065

PATIENT
  Sex: Female

DRUGS (6)
  1. GYNO PEVARYL [Suspect]
     Indication: VULVOVAGINAL MYCOTIC INFECTION
     Route: 067
  2. TEGRETOL [Suspect]
     Indication: MYOCLONUS
     Route: 048
  3. EFFEXOR [Suspect]
     Indication: DEPRESSION
     Route: 048
  4. ISOPTIN [Suspect]
     Indication: HYPERTENSION
     Route: 048
  5. NEXIUM [Concomitant]
     Route: 065
  6. ZOLPIDEM [Concomitant]
     Route: 065

REACTIONS (5)
  - C-REACTIVE PROTEIN INCREASED [None]
  - GRANULOCYTOSIS [None]
  - HEPATIC ENZYME INCREASED [None]
  - INFLAMMATION [None]
  - URTICARIA [None]
